FAERS Safety Report 8336914 (Version 3)
Quarter: 2012Q4

REPORT INFORMATION
  Report Type: 
  Country: US (occurrence: US)
  Receive Date: 20120113
  Receipt Date: 20121018
  Transmission Date: 20130627
  Serious: No
  Sender: FDA-Public Use
  Company Number: US-PFIZER INC-2012009654

PATIENT
  Age: 62 Year
  Sex: Female
  Weight: 67.12 kg

DRUGS (8)
  1. CHANTIX [Suspect]
     Indication: SMOKING CESSATION THERAPY
     Dosage: 0.5 mg daily
     Route: 048
     Dates: start: 20111202, end: 201112
  2. CHANTIX [Suspect]
     Dosage: UNK
     Route: 048
     Dates: start: 201112
  3. REMERON [Concomitant]
     Indication: DEPRESSION
     Dosage: 45 mg daily
     Route: 048
  4. LORAZEPAM [Concomitant]
     Indication: DEPRESSION
     Dosage: UNK, daily
     Route: 048
  5. CELEXA [Concomitant]
     Indication: DEPRESSION
     Dosage: 50 mg daily
     Route: 048
  6. PREDNISONE [Concomitant]
     Indication: ARTHRITIS
     Dosage: 9 mg daily
  7. CALCIUM [Concomitant]
     Dosage: UNK
  8. MULTIVITAMINS [Concomitant]
     Dosage: UNK

REACTIONS (2)
  - Abnormal behaviour [Recovered/Resolved]
  - Decreased appetite [Not Recovered/Not Resolved]
